FAERS Safety Report 14018893 (Version 1)
Quarter: 2017Q3

REPORT INFORMATION
  Report Type: Spontaneous
  Country: US (occurrence: US)
  Receive Date: 20170928
  Receipt Date: 20170928
  Transmission Date: 20171128
  Serious: Yes (Death)
  Sender: FDA-Public Use
  Company Number: None

PATIENT
  Age: 51 Year
  Sex: Male
  Weight: 134.8 kg

DRUGS (1)
  1. SAPHRIS [Suspect]
     Active Substance: ASENAPINE MALEATE
     Indication: SCHIZOAFFECTIVE DISORDER BIPOLAR TYPE
     Route: 060

REACTIONS (2)
  - Disseminated intravascular coagulation [None]
  - Unresponsive to stimuli [None]

NARRATIVE: CASE EVENT DATE: 20170926
